FAERS Safety Report 13931541 (Version 1)
Quarter: 2017Q3

REPORT INFORMATION
  Report Type: Spontaneous
  Country: PL (occurrence: PL)
  Receive Date: 20170904
  Receipt Date: 20170904
  Transmission Date: 20171127
  Serious: Yes (Other)
  Sender: FDA-Public Use
  Company Number: PL-ROCHE-1987818

PATIENT
  Age: 50 Year
  Sex: Female

DRUGS (1)
  1. BONVIVA [Suspect]
     Active Substance: IBANDRONATE SODIUM
     Indication: OSTEOPOROSIS
     Route: 065

REACTIONS (6)
  - Asthenia [Unknown]
  - Drug ineffective [Unknown]
  - Arthralgia [Unknown]
  - Myalgia [Unknown]
  - Blood cholesterol increased [Unknown]
  - Pruritus [Unknown]
